FAERS Safety Report 7054367-9 (Version None)
Quarter: 2010Q4

REPORT INFORMATION
  Report Type: 
  Country: None (occurrence: None)
  Receive Date: 20101015
  Receipt Date: 20101004
  Transmission Date: 20110411
  Serious: Yes (Death)
  Sender: FDA-Public Use
  Company Number: 1000016296

PATIENT
  Age: 81 Year
  Sex: Female

DRUGS (11)
  1. MEMANTINE HCL [Suspect]
     Indication: DEMENTIA ALZHEIMER'S TYPE
     Dosage: 20 MG (20 MG,1 IN 1 D),ORAL
     Route: 048
     Dates: start: 20080220, end: 20100914
  2. GRAMALIL (TIAPRIDE HYDROCHLORIDE) (TIAPRIDE HYDROCHLORIDE) [Concomitant]
  3. PLETAAL (CILOSTAZOL) (CILOSTAZOL) [Concomitant]
  4. THYRADIN S (LEVOTHYROXINE SODIU) (LEVOTHYROXINE SODIUM) [Concomitant]
  5. HERBESSER R (DILTIAZEM HYDROCHLORIDE) (DILTIAZEM HYDROCHLORIDE) [Concomitant]
  6. APLACE (TROXIPIDE) (TROXIPIDE) [Concomitant]
  7. BAYASPIRIN (ACETYSALICYLIC ACID) (ACETYLSALICYLIC ACID) [Concomitant]
  8. ITOROL (ISOSORBIDE MONONITRATE) (ISOSORBIDE MONONITRATE) [Concomitant]
  9. NU-LOTAN (LOSARTAN POTASSIUM) (LOSARTAN POTASSIUM) [Concomitant]
  10. ENSURE (ENSURE) (LIQUID) (ENSURE) [Concomitant]
  11. U-PASTA (U-PASTA) (U-PASTA) [Concomitant]

REACTIONS (15)
  - ANAEMIA [None]
  - BLOOD ALBUMIN DECREASED [None]
  - BLOOD ALKALINE PHOSPHATASE INCREASED [None]
  - BLOOD GLUCOSE INCREASED [None]
  - BLOOD PRESSURE DECREASED [None]
  - HAEMATOCRIT DECREASED [None]
  - HAEMOGLOBIN DECREASED [None]
  - HEART RATE DECREASED [None]
  - MALNUTRITION [None]
  - MARASMUS [None]
  - PLATELET COUNT INCREASED [None]
  - RASH [None]
  - RED BLOOD CELL COUNT DECREASED [None]
  - VOMITING [None]
  - WHITE BLOOD CELL COUNT INCREASED [None]
